FAERS Safety Report 17240643 (Version 1)
Quarter: 2020Q1

REPORT INFORMATION
  Report Type: Spontaneous
  Country: US (occurrence: US)
  Receive Date: 20200107
  Receipt Date: 20200107
  Transmission Date: 20200409
  Serious: Yes (Other)
  Sender: FDA-Public Use
  Company Number: US-AMGEN INC.-USASP2020000734

PATIENT
  Sex: Female

DRUGS (1)
  1. AIMOVIG [Suspect]
     Active Substance: ERENUMAB-AOOE
     Indication: HEADACHE
     Dosage: UNK
     Route: 065

REACTIONS (6)
  - Ovarian cyst [Unknown]
  - Alopecia [Unknown]
  - Oropharyngeal pain [Unknown]
  - Dizziness [Unknown]
  - Mouth ulceration [Unknown]
  - Haemorrhage [Unknown]
